FAERS Safety Report 23021850 (Version 4)
Quarter: 2024Q1

REPORT INFORMATION
  Report Type: Spontaneous
  Country: US (occurrence: US)
  Receive Date: 20231003
  Receipt Date: 20240119
  Transmission Date: 20240410
  Serious: Yes (Other)
  Sender: FDA-Public Use
  Company Number: US-HORIZON THERAPEUTICS-HZN-2023-005354

PATIENT

DRUGS (3)
  1. KRYSTEXXA [Suspect]
     Active Substance: PEGLOTICASE
     Indication: Gout
     Dosage: FIRST INFUSION
     Route: 042
     Dates: start: 202204
  2. KRYSTEXXA [Suspect]
     Active Substance: PEGLOTICASE
     Dosage: 7TH INFUSION
     Route: 042
     Dates: start: 2023
  3. KRYSTEXXA [Suspect]
     Active Substance: PEGLOTICASE
     Dosage: HAD BEEN PART OF TESTING ON KRYSTEXXA 15 TO 18 YEARS AGO AND THEN REPEATED ANOTHER YEAR
     Route: 042

REACTIONS (9)
  - Toe amputation [Not Recovered/Not Resolved]
  - Weight decreased [Unknown]
  - Gout [Not Recovered/Not Resolved]
  - Gout [Not Recovered/Not Resolved]
  - Gouty tophus [Not Recovered/Not Resolved]
  - Pain [Not Recovered/Not Resolved]
  - Drainage [Not Recovered/Not Resolved]
  - Limb discomfort [Not Recovered/Not Resolved]
  - Skin discolouration [Not Recovered/Not Resolved]

NARRATIVE: CASE EVENT DATE: 20230101
